FAERS Safety Report 7571889-2 (Version None)
Quarter: 2011Q2

REPORT INFORMATION
  Report Type: 
  Country: None (occurrence: None)
  Receive Date: 20110624
  Receipt Date: 20100712
  Transmission Date: 20111010
  Serious: No
  Sender: FDA-Public Use
  Company Number: A0869727A

PATIENT
  Age: 82 Year
  Sex: Female

DRUGS (2)
  1. NO CONCURRENT MEDICATION [Concomitant]
  2. VERAMYST [Suspect]
     Indication: SNEEZING
     Dosage: 2SPR PER DAY
     Route: 045
     Dates: start: 20100625, end: 20100706

REACTIONS (6)
  - EYE SWELLING [None]
  - COUGH [None]
  - VISION BLURRED [None]
  - DRUG INEFFECTIVE [None]
  - SWELLING FACE [None]
  - OCULAR HYPERAEMIA [None]
